FAERS Safety Report 21228391 (Version 1)
Quarter: 2022Q3

REPORT INFORMATION
  Report Type: Spontaneous
  Country: US (occurrence: US)
  Receive Date: 20220818
  Receipt Date: 20220818
  Transmission Date: 20221026
  Serious: Yes (Other)
  Sender: FDA-Public Use
  Company Number: US-TEVA-2022-US-2063887

PATIENT

DRUGS (2)
  1. DIAZEPAM [Suspect]
     Active Substance: DIAZEPAM
     Indication: Product used for unknown indication
     Dosage: 2 MILLIGRAM, 2 TABLETS
     Route: 065
  2. DIAZEPAM [Suspect]
     Active Substance: DIAZEPAM
     Dosage: 4 MILLIGRAM
     Route: 065

REACTIONS (5)
  - Tic [Unknown]
  - Bruxism [Unknown]
  - Hallucination [Unknown]
  - Muscle twitching [Unknown]
  - Visual impairment [Unknown]
